FAERS Safety Report 13433444 (Version 1)
Quarter: 2017Q2

REPORT INFORMATION
  Report Type: Spontaneous
  Country: SE (occurrence: SE)
  Receive Date: 20170412
  Receipt Date: 20170412
  Transmission Date: 20170830
  Serious: Yes (Other)
  Sender: FDA-Public Use
  Company Number: SE-TEVA-758972ISR

PATIENT
  Age: 76 Year
  Sex: Female

DRUGS (1)
  1. CITALOPRAM [Suspect]
     Active Substance: CITALOPRAM HYDROBROMIDE

REACTIONS (5)
  - Drug withdrawal syndrome [Not Recovered/Not Resolved]
  - Nausea [Not Recovered/Not Resolved]
  - Nightmare [Not Recovered/Not Resolved]
  - Dry mouth [Not Recovered/Not Resolved]
  - Vomiting [Not Recovered/Not Resolved]
